FAERS Safety Report 9319476 (Version 26)
Quarter: 2017Q1

REPORT INFORMATION
  Report Type: Spontaneous
  Country: US (occurrence: US)
  Receive Date: 20130530
  Receipt Date: 20170313
  Transmission Date: 20170429
  Serious: Yes (Hospitalization, Other)
  Sender: FDA-Public Use
  Company Number: US-GLAXOSMITHKLINE-A0989064A

PATIENT
  Age: 52 Year
  Sex: Female
  Weight: 99.5 kg

DRUGS (55)
  1. FLOLAN [Suspect]
     Active Substance: EPOPROSTENOL SODIUM
     Indication: PULMONARY HYPERTENSION
     Dosage: UNK
     Dates: start: 20090603
  2. FLOLAN [Suspect]
     Active Substance: EPOPROSTENOL SODIUM
     Dosage: 22 DF, CO
     Route: 042
  3. FLOLAN [Suspect]
     Active Substance: EPOPROSTENOL SODIUM
     Dosage: 20 DF, CO
     Route: 042
  4. MAGNESIUM [Concomitant]
     Active Substance: MAGNESIUM
  5. COENZYME Q10 [Concomitant]
     Active Substance: UBIDECARENONE
  6. COUMADIN [Concomitant]
     Active Substance: WARFARIN SODIUM
  7. FLOLAN [Suspect]
     Active Substance: EPOPROSTENOL SODIUM
     Dosage: UNK
     Dates: start: 20090603
  8. FLOLAN [Suspect]
     Active Substance: EPOPROSTENOL SODIUM
     Dosage: UNK
     Dates: start: 20090603
  9. FLOLAN [Suspect]
     Active Substance: EPOPROSTENOL SODIUM
     Dosage: UNK
  10. FLOLAN [Suspect]
     Active Substance: EPOPROSTENOL SODIUM
     Dosage: 20 DF, CO
     Route: 042
  11. FLOLAN [Suspect]
     Active Substance: EPOPROSTENOL SODIUM
     Dosage: 20 DF, CO
  12. FLOLAN [Suspect]
     Active Substance: EPOPROSTENOL SODIUM
     Dosage: UNK
  13. FLOLAN [Suspect]
     Active Substance: EPOPROSTENOL SODIUM
     Dosage: 20 DF, CO
     Dates: start: 20090610
  14. FLOLAN [Suspect]
     Active Substance: EPOPROSTENOL SODIUM
     Dosage: 20 DF, CO
     Dates: start: 20090610
  15. FLOLAN [Suspect]
     Active Substance: EPOPROSTENOL SODIUM
     Dosage: 20 DF, CO
     Dates: start: 20090610
  16. FLOLAN [Suspect]
     Active Substance: EPOPROSTENOL SODIUM
     Indication: PULMONARY ARTERIAL HYPERTENSION
     Dosage: UNK
  17. SYNTHROID [Concomitant]
     Active Substance: LEVOTHYROXINE SODIUM
  18. GLUCOSAMINE COMPLEX [Concomitant]
     Active Substance: GLUCOSAMINE\GLUCOSAMINE SULFATE
  19. FINACEA [Concomitant]
     Active Substance: AZELAIC ACID
  20. FLOLAN [Suspect]
     Active Substance: EPOPROSTENOL SODIUM
     Dosage: UNK
     Dates: start: 20090603
  21. FLOLAN [Suspect]
     Active Substance: EPOPROSTENOL SODIUM
     Dosage: 20 DF, UNK
     Dates: start: 20090611
  22. FLOLAN [Suspect]
     Active Substance: EPOPROSTENOL SODIUM
     Dosage: 20 DF, CO
     Dates: start: 20090610
  23. FLOLAN [Suspect]
     Active Substance: EPOPROSTENOL SODIUM
     Indication: PULMONARY ARTERIAL HYPERTENSION
  24. TORSEMIDE. [Concomitant]
     Active Substance: TORSEMIDE
  25. RED YEAST RICE [Concomitant]
     Active Substance: DIETARY SUPPLEMENT
  26. CLONAZEPAM. [Concomitant]
     Active Substance: CLONAZEPAM
  27. FERROUS SULFATE. [Concomitant]
     Active Substance: FERROUS SULFATE
  28. PRILOSEC [Concomitant]
     Active Substance: OMEPRAZOLE MAGNESIUM
  29. FLOLAN [Suspect]
     Active Substance: EPOPROSTENOL SODIUM
     Indication: PULMONARY ARTERIAL HYPERTENSION
     Dosage: 16 DF, CO
     Route: 042
     Dates: start: 20090603
  30. FLOLAN [Suspect]
     Active Substance: EPOPROSTENOL SODIUM
     Dosage: UNK
     Dates: start: 20090603
  31. TRAMADOL. [Concomitant]
     Active Substance: TRAMADOL
  32. GLUCAGON. [Concomitant]
     Active Substance: GLUCAGON
  33. WARFARIN SODIUM. [Concomitant]
     Active Substance: WARFARIN SODIUM
  34. FLOLAN [Suspect]
     Active Substance: EPOPROSTENOL SODIUM
     Dosage: 20 DF, CO
     Route: 042
  35. FEXOFENADINE HYDROCHLORIDE. [Concomitant]
     Active Substance: FEXOFENADINE HYDROCHLORIDE
  36. RANITIDINE. [Concomitant]
     Active Substance: RANITIDINE
  37. MANGANESE GLUCONATE. [Concomitant]
     Active Substance: MANGANESE GLUCONATE
  38. LYRICA [Concomitant]
     Active Substance: PREGABALIN
  39. GUAIFENESIN. [Concomitant]
     Active Substance: GUAIFENESIN
  40. CHLORPHENIRAMINE + HYDROCODONE [Concomitant]
     Active Substance: CHLORPHENIRAMINE HYDROCHLORIDE\HYDROCODONE
  41. FLOLAN [Suspect]
     Active Substance: EPOPROSTENOL SODIUM
     Dosage: UNK
     Dates: start: 20090603
  42. FLOLAN [Suspect]
     Active Substance: EPOPROSTENOL SODIUM
     Dosage: UNK
     Dates: start: 20090611
  43. FLOLAN [Suspect]
     Active Substance: EPOPROSTENOL SODIUM
     Dosage: UNK, CO
     Dates: start: 20090610
  44. FLOLAN [Suspect]
     Active Substance: EPOPROSTENOL SODIUM
     Dosage: 20 DF, CO
     Route: 042
  45. NASONEX [Concomitant]
     Active Substance: MOMETASONE FUROATE
  46. METAXALONE. [Concomitant]
     Active Substance: METAXALONE
  47. EFFEXOR XR [Concomitant]
     Active Substance: VENLAFAXINE HYDROCHLORIDE
  48. FLOLAN [Suspect]
     Active Substance: EPOPROSTENOL SODIUM
     Dosage: UNK
     Dates: start: 20090603
  49. FLOLAN [Suspect]
     Active Substance: EPOPROSTENOL SODIUM
     Dosage: UNK
     Dates: start: 20161014
  50. ADCIRCA [Concomitant]
     Active Substance: TADALAFIL
  51. DOXYCYCLINE. [Concomitant]
     Active Substance: DOXYCYCLINE
  52. FLOLAN [Suspect]
     Active Substance: EPOPROSTENOL SODIUM
     Dosage: UNK
     Dates: start: 20090603
  53. FLOLAN [Suspect]
     Active Substance: EPOPROSTENOL SODIUM
     Dosage: 20 DF, CO
  54. ONDANSETRON [Concomitant]
     Active Substance: ONDANSETRON
  55. LOSARTAN POTASSIUM. [Concomitant]
     Active Substance: LOSARTAN POTASSIUM

REACTIONS (38)
  - Cellulitis [Unknown]
  - Catheter site discharge [Recovering/Resolving]
  - Pain in extremity [Not Recovered/Not Resolved]
  - Fatigue [Not Recovered/Not Resolved]
  - Feeling hot [Not Recovered/Not Resolved]
  - Upper respiratory tract infection [Unknown]
  - Suture insertion [Unknown]
  - Tooth disorder [Unknown]
  - Rash macular [Not Recovered/Not Resolved]
  - Central venous catheterisation [Unknown]
  - Allergic sinusitis [Recovered/Resolved]
  - Vertigo [Unknown]
  - Malaise [Not Recovered/Not Resolved]
  - Chest pain [Unknown]
  - Muscle strain [Unknown]
  - Ear infection [Unknown]
  - Back disorder [Recovering/Resolving]
  - Infusion site cellulitis [Recovered/Resolved]
  - Catheter site infection [Unknown]
  - Device related infection [Unknown]
  - Headache [Not Recovered/Not Resolved]
  - Ill-defined disorder [Unknown]
  - Pain in jaw [Unknown]
  - Jugular vein thrombosis [Unknown]
  - Ovarian cyst [Unknown]
  - Medical device change [Unknown]
  - Cough [Unknown]
  - Muscle spasms [Recovered/Resolved]
  - Catheter site erythema [Recovering/Resolving]
  - Diarrhoea [Unknown]
  - Skin irritation [Unknown]
  - Influenza [Unknown]
  - Rash [Recovering/Resolving]
  - Flushing [Not Recovered/Not Resolved]
  - Weight decreased [Unknown]
  - Vaginal haemorrhage [Unknown]
  - Sinusitis [Unknown]
  - Complication associated with device [Unknown]

NARRATIVE: CASE EVENT DATE: 20120612
